FAERS Safety Report 5308698-0 (Version None)
Quarter: 2007Q2

REPORT INFORMATION
  Report Type: 
  Country: None (occurrence: None)
  Receive Date: 20070426
  Receipt Date: 20070420
  Transmission Date: 20071010
  Serious: Yes (Other)
  Sender: FDA-Public Use
  Company Number: DK-GLAXOSMITHKLINE-B0464491A

PATIENT
  Age: 72 Year
  Sex: Female

DRUGS (4)
  1. HYCAMTIN [Suspect]
     Indication: DRUG USE FOR UNKNOWN INDICATION
     Route: 065
     Dates: start: 20061030, end: 20070330
  2. MAGNYL [Concomitant]
     Dosage: 150MG PER DAY
  3. MORFIN [Concomitant]
  4. ADALAT [Concomitant]
     Dosage: 10MG TWICE PER DAY

REACTIONS (1)
  - GANGRENE [None]
